FAERS Safety Report 20542422 (Version 5)
Quarter: 2023Q2

REPORT INFORMATION
  Report Type: Spontaneous
  Country: US (occurrence: US)
  Receive Date: 20220302
  Receipt Date: 20230620
  Transmission Date: 20230722
  Serious: Yes (Hospitalization, Disabling, Other)
  Sender: FDA-Public Use
  Company Number: US-ORGANON-O2203USA000121

PATIENT
  Sex: Male
  Weight: 36.5 kg

DRUGS (7)
  1. SINGULAIR [Suspect]
     Active Substance: MONTELUKAST SODIUM
     Indication: Asthma
     Dosage: UNK
     Route: 048
     Dates: start: 20070101, end: 20160101
  2. SINGULAIR [Suspect]
     Active Substance: MONTELUKAST SODIUM
     Indication: Asthma
     Dosage: UNK
     Route: 048
     Dates: start: 20070101, end: 20160101
  3. PULMICORT TURBUHALER [Suspect]
     Active Substance: BUDESONIDE
     Indication: Asthma
     Dosage: 1 CLICK TWICE DAILY
     Dates: start: 200412
  4. PREDNISONE [Suspect]
     Active Substance: PREDNISONE
     Indication: Asthma
     Dosage: DAILY (7-DAY PULSE)
     Dates: start: 200412
  5. PROAIR HFA [Suspect]
     Active Substance: ALBUTEROL SULFATE
     Indication: Wheezing
     Dosage: 2 PUFFS BY INHALATION EVERY 4 HOURS AS NEEDED, 90 MCG/ACTUATLON
     Dates: start: 20100115, end: 20101216
  6. PROAIR HFA [Suspect]
     Active Substance: ALBUTEROL SULFATE
     Indication: Cough
  7. QVAR [Suspect]
     Active Substance: BECLOMETHASONE DIPROPIONATE
     Dosage: UNK
     Dates: end: 20100520

REACTIONS (19)
  - Neuropsychiatric symptoms [Not Recovered/Not Resolved]
  - Gastric ulcer [Not Recovered/Not Resolved]
  - Panic attack [Unknown]
  - Dementia Alzheimer^s type [Unknown]
  - Obsessive thoughts [Not Recovered/Not Resolved]
  - Obsessive-compulsive disorder [Not Recovered/Not Resolved]
  - Cyclic vomiting syndrome [Unknown]
  - Suicide attempt [Unknown]
  - Intentional self-injury [Unknown]
  - Tic [Not Recovered/Not Resolved]
  - Disturbance in attention [Not Recovered/Not Resolved]
  - Suicidal behaviour [Not Recovered/Not Resolved]
  - Anxiety [Not Recovered/Not Resolved]
  - Nausea [Not Recovered/Not Resolved]
  - Paraesthesia [Not Recovered/Not Resolved]
  - Hallucination [Not Recovered/Not Resolved]
  - Aggression [Not Recovered/Not Resolved]
  - Depression [Not Recovered/Not Resolved]
  - Suicidal ideation [Not Recovered/Not Resolved]

NARRATIVE: CASE EVENT DATE: 20070101
